FAERS Safety Report 5102880-3 (Version None)
Quarter: 2006Q3

REPORT INFORMATION
  Report Type: 
  Country: None (occurrence: None)
  Receive Date: 20060908
  Receipt Date: 20060831
  Transmission Date: 20061208
  Serious: Yes (Other)
  Sender: FDA-Public Use
  Company Number: GXKR2006US05396

PATIENT
  Age: 53 Year
  Sex: Male

DRUGS (5)
  1. RIBAVIRIN [Suspect]
     Indication: HEPATITIS C
     Dosage: 400 MG, BID, ORAL
     Route: 048
  2. PEGINTERFERON (PEGINTERFERON) [Suspect]
     Indication: HEPATITIS C
     Dosage: 180 UG, QW, INJECTION NOS
  3. METHADONE HCL [Concomitant]
  4. OLANZAPINE [Concomitant]
  5. SERTRALINE [Concomitant]

REACTIONS (10)
  - APPETITE DISORDER [None]
  - CONDITION AGGRAVATED [None]
  - DEPRESSION [None]
  - DRUG ABUSER [None]
  - DRUG DEPENDENCE [None]
  - FATIGUE [None]
  - IRRITABILITY [None]
  - SCHIZOAFFECTIVE DISORDER [None]
  - STRESS [None]
  - WEIGHT DECREASED [None]
